FAERS Safety Report 5616154-5 (Version None)
Quarter: 2008Q1

REPORT INFORMATION
  Report Type: 
  Country: None (occurrence: None)
  Receive Date: 20080201
  Receipt Date: 20080122
  Transmission Date: 20080703
  Serious: Yes (Other)
  Sender: FDA-Public Use
  Company Number: 021778

PATIENT
  Age: 28 Year
  Sex: Female

DRUGS (1)
  1. CLARAVIS [Suspect]
     Dosage: 10 CAPS., WEEKLY, ORAL
     Route: 048
     Dates: start: 20070718, end: 20071201

REACTIONS (3)
  - DRUG EXPOSURE DURING PREGNANCY [None]
  - TREATMENT NONCOMPLIANCE [None]
  - UNINTENDED PREGNANCY [None]
